FAERS Safety Report 21953339 (Version 5)
Quarter: 2023Q2

REPORT INFORMATION
  Report Type: Spontaneous
  Country: CA (occurrence: CA)
  Receive Date: 20230204
  Receipt Date: 20230608
  Transmission Date: 20230722
  Serious: Yes (Hospitalization, Other)
  Sender: FDA-Public Use
  Company Number: CA-CELLTRION INC.-2023CA002560

PATIENT

DRUGS (4)
  1. INFLECTRA [Suspect]
     Active Substance: INFLIXIMAB-DYYB
     Indication: Takayasu^s arteritis
     Dosage: 520 MG ((5 MG/KG) Q 0, 2, 6 WEEKS THEN EVERY 4 WEEKS)
     Route: 042
     Dates: start: 20220117
  2. INFLECTRA [Suspect]
     Active Substance: INFLIXIMAB-DYYB
     Dosage: 520 MG ((5 MG/KG) Q 0, 2, 6 WEEKS THEN EVERY 4 WEEKS)
     Route: 042
     Dates: start: 20230127
  3. INFLECTRA [Suspect]
     Active Substance: INFLIXIMAB-DYYB
     Dosage: 520 MG, Q4 WEEKS
     Route: 042
     Dates: start: 20230220
  4. INFLECTRA [Suspect]
     Active Substance: INFLIXIMAB-DYYB
     Dosage: 520 MG,  (5 MG/KG) Q 0, 2, 6 WEEKS THEN EVERY 4 WEEKS)
     Route: 042
     Dates: start: 20230421

REACTIONS (6)
  - Abortion spontaneous [Recovering/Resolving]
  - Vomiting [Not Recovered/Not Resolved]
  - Pyrexia [Recovered/Resolved]
  - Diarrhoea [Not Recovered/Not Resolved]
  - Migraine [Recovered/Resolved]
  - Off label use [Unknown]

NARRATIVE: CASE EVENT DATE: 20220117
